FAERS Safety Report 6176962-1 (Version None)
Quarter: 2009Q2

REPORT INFORMATION
  Report Type: 
  Country: None (occurrence: None)
  Receive Date: 20090501
  Receipt Date: 20090128
  Transmission Date: 20091009
  Serious: Yes (Other)
  Sender: FDA-Public Use
  Company Number: US-ALEXION-A200900031

PATIENT
  Sex: Female

DRUGS (6)
  1. SOLIRIS [Suspect]
     Indication: PAROXYSMAL NOCTURNAL HAEMOGLOBINURIA
     Dosage: 600 MG, QWK
     Dates: start: 20080211, end: 20080304
  2. SOLIRIS [Suspect]
     Dosage: 900 MG, Q2WK
     Route: 042
     Dates: start: 20080311
  3. ARIXTRA [Concomitant]
     Indication: EMBOLISM
     Dosage: 7.5 MG/0.6 MG QD
  4. NADOLOL [Concomitant]
     Indication: VARICOSE VEIN
     Dosage: 80 MG, QD
  5. NEURONTIN [Concomitant]
     Indication: MIGRAINE
     Dosage: 300 MG, QD
  6. GLUCOPHAGE [Concomitant]
     Indication: BLOOD GLUCOSE INCREASED
     Dosage: UNK

REACTIONS (1)
  - PNEUMONIA [None]
